FAERS Safety Report 8858561 (Version 1)
Quarter: 2012Q4

REPORT INFORMATION
  Report Type: 
  Country: US (occurrence: US)
  Receive Date: 20121024
  Receipt Date: 20121024
  Transmission Date: 20130627
  Serious: Yes (Other)
  Sender: FDA-Public Use
  Company Number: US-PFIZER INC-2012264453

PATIENT
  Age: 65 Year
  Sex: Female
  Weight: 55.33 kg

DRUGS (6)
  1. LYRICA [Suspect]
     Indication: INTERVERTEBRAL DISC PROTRUSION
     Dosage: 75 mg, 3x/day
     Route: 048
     Dates: start: 20120828
  2. AMLODIPINE [Concomitant]
     Indication: HYPERTENSION
     Dosage: 10 mg, 1x/day
  3. LIPITOR [Concomitant]
     Dosage: UNK, 1x/day
  4. BENAZEPRIL [Concomitant]
     Dosage: 20 mg, 1x/day
  5. VITAMIN B12 [Concomitant]
     Dosage: UNK
  6. OXYGEN [Concomitant]
     Dosage: 2.5 l, UNK

REACTIONS (5)
  - Cerebral haemorrhage [Unknown]
  - Dyspnoea [Unknown]
  - Dizziness [Unknown]
  - Product expiration date issue [Unknown]
  - Drug ineffective [Unknown]
